FAERS Safety Report 9704307 (Version 3)
Quarter: 2014Q1

REPORT INFORMATION
  Report Type: Spontaneous
  Country: CA (occurrence: CA)
  Receive Date: 20131122
  Receipt Date: 20140219
  Transmission Date: 20141002
  Serious: Yes (Life-Threatening, Hospitalization, Other)
  Sender: FDA-Public Use
  Company Number: CA-009507513-1311CAN007788

PATIENT
  Age: 65 Year
  Sex: Male
  Weight: 57.6 kg

DRUGS (6)
  1. VICTRELIS TRIPLE [Suspect]
     Indication: HEPATITIS C
     Dosage: 800 MG, UNK
     Route: 065
     Dates: start: 20130702
  2. VICTRELIS TRIPLE [Suspect]
     Dosage: 100 MICROGRAM
     Route: 065
     Dates: start: 20130604
  3. VICTRELIS TRIPLE [Suspect]
     Dosage: UNK
     Route: 065
  4. DIAMICRON [Concomitant]
     Dosage: 30 MG, BID
  5. LEVOTHYROXINE SODIUM [Concomitant]
     Dosage: UNK
     Route: 048
  6. NADOLOL [Concomitant]

REACTIONS (4)
  - Haemoptysis [Recovered/Resolved]
  - Transfusion [Unknown]
  - Syncope [Unknown]
  - Haemoglobin decreased [Unknown]
